FAERS Safety Report 10752297 (Version 1)
Quarter: 2015Q1

REPORT INFORMATION
  Report Type: Spontaneous
  Country: SG (occurrence: SG)
  Receive Date: 20150130
  Receipt Date: 20150130
  Transmission Date: 20150721
  Serious: Yes (Hospitalization)
  Sender: FDA-Public Use
  Company Number: SG-GE HEALTHCARE MEDICAL DIAGNOSTICS-OMPQ-PR-1501S-0054

PATIENT
  Age: 17 Year
  Sex: Male

DRUGS (2)
  1. OMNIPAQUE [Suspect]
     Active Substance: IOHEXOL
     Indication: DIAGNOSTIC PROCEDURE
  2. OMNIPAQUE [Suspect]
     Active Substance: IOHEXOL
     Indication: HEADACHE
     Route: 042
     Dates: start: 20150121, end: 20150121

REACTIONS (6)
  - Mouth swelling [Recovered/Resolved with Sequelae]
  - Dyspnoea [Recovered/Resolved with Sequelae]
  - Eye swelling [Recovered/Resolved with Sequelae]
  - Blood pressure decreased [Unknown]
  - Rash pruritic [Recovered/Resolved with Sequelae]
  - Oxygen saturation decreased [Unknown]

NARRATIVE: CASE EVENT DATE: 20150121
